FAERS Safety Report 17629103 (Version 1)
Quarter: 2020Q2

REPORT INFORMATION
  Report Type: Spontaneous
  Country: US (occurrence: US)
  Receive Date: 20200406
  Receipt Date: 20200406
  Transmission Date: 20200713
  Serious: No
  Sender: FDA-Public Use
  Company Number: US-ALLERGAN-2003818US

PATIENT
  Sex: Female
  Weight: 61.23 kg

DRUGS (3)
  1. MESALAZINE - BP [Suspect]
     Active Substance: MESALAMINE
     Indication: COLITIS ULCERATIVE
     Dosage: 400 MG, QD (6 DF A DAY)
     Route: 065
     Dates: end: 201912
  2. OTHER MEDICINES (UNSPECIFIED) [Concomitant]
  3. MESALAZINE - BP [Suspect]
     Active Substance: MESALAMINE
     Dosage: 400 DF, QD (4 DF A DAY)
     Route: 065
     Dates: start: 201910

REACTIONS (2)
  - Abdominal distension [Recovered/Resolved]
  - Product appearance confusion [Unknown]
